FAERS Safety Report 8517299-2 (Version None)
Quarter: 2012Q3

REPORT INFORMATION
  Report Type: 
  Country: None (occurrence: None)
  Receive Date: 20120718
  Receipt Date: 20120711
  Transmission Date: 20120928
  Serious: Yes (Hospitalization)
  Sender: FDA-Public Use
  Company Number: JP-PFIZER INC-2012151393

PATIENT

DRUGS (2)
  1. ROCEPHIN [Concomitant]
     Indication: PNEUMONIA
     Dosage: 2 G/DAY
     Route: 041
     Dates: start: 20120618, end: 20120621
  2. ZITHROMAX [Suspect]
     Indication: PNEUMONIA
     Dosage: 500 MG, 1X/DAY
     Route: 041
     Dates: start: 20120618, end: 20120621

REACTIONS (1)
  - BLOOD CREATINE PHOSPHOKINASE INCREASED [None]
